FAERS Safety Report 6400021-3 (Version None)
Quarter: 2009Q4

REPORT INFORMATION
  Report Type: 
  Country: None (occurrence: None)
  Receive Date: 20091014
  Receipt Date: 20091006
  Transmission Date: 20100525
  Serious: Yes (Hospitalization)
  Sender: FDA-Public Use
  Company Number: A0730964A

PATIENT
  Age: 60 Year
  Sex: Male
  Weight: 104.5 kg

DRUGS (12)
  1. AVANDIA [Suspect]
     Indication: DIABETES MELLITUS
     Dosage: 8MG TWICE PER DAY
     Route: 048
     Dates: start: 19990101, end: 20070601
  2. LANTUS [Concomitant]
  3. TYLENOL (CAPLET) [Concomitant]
  4. ADVIL [Concomitant]
  5. ASPIRIN [Concomitant]
  6. METFORMIN HYDROCHLORIDE [Concomitant]
  7. INSULIN [Concomitant]
  8. ZETIA [Concomitant]
  9. MONOPRIL [Concomitant]
  10. ATENOLOL [Concomitant]
  11. LIPITOR [Concomitant]
  12. GLUCOPHAGE [Concomitant]

REACTIONS (4)
  - CARDIAC FAILURE CONGESTIVE [None]
  - ISCHAEMIC CARDIOMYOPATHY [None]
  - MYOCARDIAL INFARCTION [None]
  - RENAL FAILURE [None]
